FAERS Safety Report 12467929 (Version 2)
Quarter: 2016Q2

REPORT INFORMATION
  Report Type: Spontaneous
  Country: US (occurrence: US)
  Receive Date: 20160615
  Receipt Date: 20160623
  Transmission Date: 20160815
  Serious: Yes (Hospitalization, Other)
  Sender: FDA-Public Use
  Company Number: US-ALEXION PHARMACEUTICALS INC-A201604306

PATIENT
  Sex: Female

DRUGS (1)
  1. SOLIRIS [Suspect]
     Active Substance: ECULIZUMAB
     Indication: PAROXYSMAL NOCTURNAL HAEMOGLOBINURIA
     Dosage: UNK
     Route: 042

REACTIONS (9)
  - Musculoskeletal chest pain [Recovered/Resolved]
  - Photosensitivity reaction [Unknown]
  - Mental status changes [Not Recovered/Not Resolved]
  - Gastrointestinal haemorrhage [Not Recovered/Not Resolved]
  - Neck pain [Unknown]
  - Seizure [Not Recovered/Not Resolved]
  - Vaginal haemorrhage [Recovered/Resolved]
  - Device related infection [Unknown]
  - Headache [Unknown]

NARRATIVE: CASE EVENT DATE: 20160604
